FAERS Safety Report 7744413-9 (Version None)
Quarter: 2011Q3

REPORT INFORMATION
  Report Type: 
  Country: None (occurrence: None)
  Receive Date: 20110912
  Receipt Date: 20110830
  Transmission Date: 20111222
  Serious: Yes (Hospitalization, Other)
  Sender: FDA-Public Use
  Company Number: US-ELI_LILLY_AND_COMPANY-US200911000282

PATIENT
  Sex: Female

DRUGS (15)
  1. LASIX [Concomitant]
  2. POTASSIUM [Concomitant]
  3. DIGOXIN [Concomitant]
     Dosage: 1 DF, UNK
  4. DIGOXIN [Concomitant]
     Dosage: 0.5 DF, UNK
  5. ALDACTONE [Concomitant]
  6. ALTACE [Concomitant]
  7. FOLIC ACID [Concomitant]
  8. SINGULAIR [Concomitant]
  9. CRESTOR [Concomitant]
  10. FORTEO [Suspect]
     Indication: OSTEOPOROSIS
     Dosage: 20 UG, DAILY (1/D)
     Dates: start: 20091001
  11. FORTEO [Suspect]
     Dosage: 20 UG, QD
  12. FORTEO [Suspect]
     Dosage: 20 UG, DAILY (1/D)
  13. COREG [Concomitant]
  14. ASPIRIN [Concomitant]
  15. PREDNISONE [Concomitant]

REACTIONS (7)
  - CARDIAC FAILURE CONGESTIVE [None]
  - LOSS OF CONSCIOUSNESS [None]
  - CARDIOACTIVE DRUG LEVEL INCREASED [None]
  - FEELING ABNORMAL [None]
  - INJECTION SITE HAEMATOMA [None]
  - DIARRHOEA [None]
  - BACK PAIN [None]
